FAERS Safety Report 4465043-0 (Version None)
Quarter: 2004Q3

REPORT INFORMATION
  Report Type: 
  Country: None (occurrence: None)
  Receive Date: 20040929
  Receipt Date: 20040910
  Transmission Date: 20050211
  Serious: Yes (Other)
  Sender: FDA-Public Use
  Company Number: USA040977996

PATIENT
  Age: 45 Year
  Sex: Female

DRUGS (6)
  1. CYMBALTA [Suspect]
     Indication: DEPRESSION
     Dosage: 30 MG/ 1 DAY
     Dates: start: 20040910
  2. ATIVAN [Concomitant]
  3. ATENOLOL [Concomitant]
  4. MIRAPEX (MIRAPEX) [Concomitant]
  5. SYNTHROID [Concomitant]
  6. LEXAPRO [Concomitant]

REACTIONS (6)
  - ABNORMAL BEHAVIOUR [None]
  - ALCOHOL USE [None]
  - ATTENTION-SEEKING BEHAVIOUR [None]
  - IMPAIRED DRIVING ABILITY [None]
  - INTENTIONAL SELF-INJURY [None]
  - LOSS OF CONSCIOUSNESS [None]
